FAERS Safety Report 22594098 (Version 1)
Quarter: 2023Q2

REPORT INFORMATION
  Report Type: Other
  Country: JP (occurrence: JP)
  Receive Date: 20230613
  Receipt Date: 20230613
  Transmission Date: 20230721
  Serious: Yes (Hospitalization, Other)
  Sender: FDA-Public Use
  Company Number: JP-Bion-011718

PATIENT
  Age: 66 Year
  Sex: Male

DRUGS (6)
  1. ENALAPRIL [Suspect]
     Active Substance: ENALAPRIL
     Indication: Ventricular dysfunction
  2. BISOPROLOL [Concomitant]
     Active Substance: BISOPROLOL
     Indication: Ventricular dysfunction
  3. SPIRONOLACTONE [Concomitant]
     Active Substance: SPIRONOLACTONE
     Indication: Ventricular dysfunction
  4. TOLVAPTAN [Concomitant]
     Active Substance: TOLVAPTAN
     Indication: Ventricular dysfunction
  5. AZOSEMIDE [Concomitant]
     Active Substance: AZOSEMIDE
     Indication: Ventricular dysfunction
  6. DENOPAMINE [Concomitant]
     Active Substance: DENOPAMINE
     Indication: Ventricular dysfunction

REACTIONS (3)
  - Low cardiac output syndrome [Recovered/Resolved]
  - Renal impairment [Recovered/Resolved]
  - Hypotension [Recovered/Resolved]
